FAERS Safety Report 23670946 (Version 1)
Quarter: 2024Q1

REPORT INFORMATION
  Report Type: Spontaneous
  Country: US (occurrence: None)
  Receive Date: 20240326
  Receipt Date: 20240326
  Transmission Date: 20240410
  Serious: No
  Sender: FDA-Public Use
  Company Number: US-ROCHE-3412772

PATIENT
  Age: 12 Year
  Sex: Male
  Weight: 36.7 kg

DRUGS (1)
  1. EVRYSDI [Suspect]
     Active Substance: RISDIPLAM
     Indication: Spinal muscular atrophy
     Dates: start: 20200716

REACTIONS (1)
  - Sunburn [Recovered/Resolved]

NARRATIVE: CASE EVENT DATE: 20230731
